FAERS Safety Report 19686039 (Version 1)
Quarter: 2021Q3

REPORT INFORMATION
  Report Type: Spontaneous
  Country: US (occurrence: US)
  Receive Date: 20210811
  Receipt Date: 20210811
  Transmission Date: 20211014
  Serious: No
  Sender: FDA-Public Use
  Company Number: US-PERRIGO-20US016778

PATIENT

DRUGS (1)
  1. LORATADINE. [Suspect]
     Active Substance: LORATADINE
     Indication: SNEEZING
     Dosage: UNKNOWN, UNKNOWN
     Route: 048
     Dates: start: 202011, end: 202011

REACTIONS (3)
  - Nasal dryness [Unknown]
  - Drug ineffective [Unknown]
  - Epistaxis [Unknown]

NARRATIVE: CASE EVENT DATE: 202011
